FAERS Safety Report 23178348 (Version 3)
Quarter: 2024Q2

REPORT INFORMATION
  Report Type: Spontaneous
  Country: US (occurrence: US)
  Receive Date: 20231113
  Receipt Date: 20240515
  Transmission Date: 20240716
  Serious: Yes (Other)
  Sender: FDA-Public Use
  Company Number: US-BAYER-2023A161378

PATIENT
  Age: 53 Year
  Sex: Female
  Weight: 139 kg

DRUGS (8)
  1. GADAVIST [Suspect]
     Active Substance: GADOBUTROL
     Indication: Magnetic resonance imaging
     Dosage: 6.5 ML, ONCE
     Route: 042
     Dates: start: 20231027, end: 20231027
  2. GADAVIST [Suspect]
     Active Substance: GADOBUTROL
     Indication: Urinary tract infection
  3. BENTYL [Concomitant]
     Active Substance: DICYCLOMINE HYDROCHLORIDE
  4. ESTRACE [Concomitant]
     Active Substance: ESTRADIOL
  5. LEVOTHYROXINE [Concomitant]
     Active Substance: LEVOTHYROXINE\LEVOTHYROXINE SODIUM
  6. NORETHINDRONE [Concomitant]
     Active Substance: NORETHINDRONE
  7. PROBIOTICS NOS [Concomitant]
     Active Substance: PROBIOTICS NOS
  8. MINERALS\VITAMINS [Concomitant]
     Active Substance: MINERALS\VITAMINS

REACTIONS (9)
  - Sneezing [Recovered/Resolved]
  - Lacrimation increased [Recovered/Resolved]
  - Flushing [Recovered/Resolved]
  - Erythema [Recovered/Resolved]
  - Nausea [Recovered/Resolved]
  - Vomiting [Recovered/Resolved]
  - Throat tightness [Recovered/Resolved]
  - Cough [Recovered/Resolved]
  - Contrast media allergy [Recovered/Resolved]

NARRATIVE: CASE EVENT DATE: 20231027
